FAERS Safety Report 19598401 (Version 2)
Quarter: 2021Q4

REPORT INFORMATION
  Report Type: Spontaneous
  Country: GB (occurrence: GB)
  Receive Date: 20210723
  Receipt Date: 20211016
  Transmission Date: 20220303
  Serious: Yes (Death, Hospitalization, Other)
  Sender: FDA-Public Use
  Company Number: GB-ROCHE-2828534

PATIENT
  Age: 44 Year
  Sex: Female
  Weight: 68.9 kg

DRUGS (35)
  1. PACLITAXEL [Suspect]
     Active Substance: PACLITAXEL
     Indication: Non-small cell lung cancer
     Dosage: 240  MG
     Route: 065
     Dates: start: 20201216
  2. CARBOPLATIN [Suspect]
     Active Substance: CARBOPLATIN
     Indication: Non-small cell lung cancer
     Dosage: 450MG
     Route: 065
     Dates: start: 20201216
  3. ETOPOSIDE [Suspect]
     Active Substance: ETOPOSIDE
     Indication: Non-small cell lung cancer
     Route: 065
  4. ATEZOLIZUMAB [Suspect]
     Active Substance: ATEZOLIZUMAB
     Indication: Non-small cell lung cancer
     Dosage: MOST RECENT DOSE OF ATEZOLIZUMAB ON 17/FEB/2021.1200 MG
     Route: 041
     Dates: start: 20201216, end: 20210217
  5. BEVACIZUMAB [Suspect]
     Active Substance: BEVACIZUMAB
     Indication: Non-small cell lung cancer
     Dosage: 1000 MG
     Route: 065
     Dates: start: 20201216
  6. METHYLPREDNISOLONE [Suspect]
     Active Substance: METHYLPREDNISOLONE
     Dosage: 130 MILLIGRAM DAILY; 130MG
     Route: 048
  7. METHYLPREDNISOLONE [Suspect]
     Active Substance: METHYLPREDNISOLONE
     Dosage: 2 MG/KG DAILY; 2 MG/KG ONCE DAILY;
     Route: 042
     Dates: start: 20210310
  8. AMITRIPTYLINE [Concomitant]
     Active Substance: AMITRIPTYLINE
     Dosage: 1 DOSAGE FORMS DAILY;
     Route: 065
  9. CITALOPRAM [Concomitant]
     Active Substance: CITALOPRAM HYDROBROMIDE
     Dosage: 1 DOSAGE FORMS DAILY;
     Route: 065
  10. COSMOCOL [Concomitant]
     Indication: Constipation
     Route: 065
     Dates: start: 20190906
  11. DALTEPARIN [Concomitant]
     Active Substance: DALTEPARIN
     Dosage: 1 DOSAGE FORMS DAILY;
     Route: 065
     Dates: start: 20201228
  12. DOCUSATE [Concomitant]
     Active Substance: DOCUSATE
     Indication: Constipation
     Dosage: UNK, 1 AS NECESSARY
     Route: 065
     Dates: start: 20210118
  13. IBUPROFEN [Concomitant]
     Active Substance: IBUPROFEN
     Indication: Pain
     Dosage: UNK, 1 AS NECESSARY
     Route: 065
  14. POLYETHYLENE GLYCOL 3350\POTASSIUM CHLORIDE\SODIUM BICARBONATE\SODIUM [Concomitant]
     Active Substance: POLYETHYLENE GLYCOL 3350\POTASSIUM CHLORIDE\SODIUM BICARBONATE\SODIUM CHLORIDE
     Route: 065
  15. LEVOTHYROXINE [Concomitant]
     Active Substance: LEVOTHYROXINE
     Dosage: 1 DOSAGE FORMS DAILY;
     Route: 065
  16. MORPHINE [Concomitant]
     Active Substance: MORPHINE
     Indication: Cancer pain
     Dosage: 120 MG
  17. MORPHINE [Concomitant]
     Active Substance: MORPHINE
     Dosage: 180 MILLIGRAM DAILY; 90 MG, BID, INCREASED
  18. MORPHINE [Concomitant]
     Active Substance: MORPHINE
     Dosage: 2 DOSAGE FORMS DAILY;
     Dates: start: 20201203
  19. OMEPRAZOLE [Concomitant]
     Active Substance: OMEPRAZOLE
     Indication: Prophylaxis
     Dosage: 1 DOSAGE FORMS DAILY;
     Route: 065
     Dates: start: 20200724
  20. ONDANSETRON [Concomitant]
     Active Substance: ONDANSETRON
     Indication: Prophylaxis
     Dosage: 3 DOSAGE FORMS DAILY;
     Route: 065
     Dates: start: 20210211
  21. ONDANSETRON [Concomitant]
     Active Substance: ONDANSETRON
     Dosage: 3 DOSAGE FORMS DAILY;
  22. MORPHINE SULFATE [Concomitant]
     Active Substance: MORPHINE SULFATE
     Indication: Cancer pain
     Route: 065
     Dates: start: 20201124
  23. ACETAMINOPHEN [Concomitant]
     Active Substance: ACETAMINOPHEN
     Dosage: 4 DOSAGE FORMS DAILY;
     Route: 065
     Dates: start: 20201223
  24. SENNA LEAF [Concomitant]
     Active Substance: SENNA LEAF
     Route: 065
  25. LEVOMEPROMAZINE [Concomitant]
     Active Substance: LEVOMEPROMAZINE
     Dosage: 12.5MG
     Route: 065
     Dates: start: 20210403
  26. POLYETHYLENE GLYCOLS [Concomitant]
     Active Substance: POLYETHYLENE GLYCOLS
     Indication: Constipation
     Dosage: UNK, 1 AS NECESSARY
     Route: 065
     Dates: start: 20190906
  27. CASSIA [Concomitant]
     Route: 065
  28. DEXAMETHASONE [Concomitant]
     Active Substance: DEXAMETHASONE
     Dosage: 20MG
     Route: 065
     Dates: start: 20210106, end: 20210106
  29. DEXAMETHASONE [Concomitant]
     Active Substance: DEXAMETHASONE
     Dosage: 20MG
     Route: 065
     Dates: start: 20201216, end: 20201216
  30. DEXAMETHASONE [Concomitant]
     Active Substance: DEXAMETHASONE
     Dosage: 20MG
     Route: 065
     Dates: start: 20210127, end: 20210127
  31. ESTRADIOL [Concomitant]
     Active Substance: ESTRADIOL
     Route: 065
  32. METOCLOPRAMIDE [Concomitant]
     Active Substance: METOCLOPRAMIDE
     Route: 065
  33. RANITIDINE [Concomitant]
     Active Substance: RANITIDINE
     Dosage: 50MG
     Route: 065
     Dates: start: 20210106, end: 20210106
  34. RANITIDINE [Concomitant]
     Active Substance: RANITIDINE
     Dosage: 50MG
     Route: 065
     Dates: start: 20201216, end: 20201216
  35. RANITIDINE [Concomitant]
     Active Substance: RANITIDINE
     Dosage: 50MG
     Route: 065
     Dates: start: 20210127, end: 20210127

REACTIONS (10)
  - Disease progression [Fatal]
  - Hepatic failure [Recovered/Resolved]
  - Abdominal pain upper [Not Recovered/Not Resolved]
  - Product use in unapproved indication [Unknown]
  - General physical health deterioration [Unknown]
  - Dyspnoea [Unknown]
  - Fatigue [Recovered/Resolved]
  - Vomiting [Unknown]
  - Nausea [Unknown]
  - Sinus tachycardia [Unknown]

NARRATIVE: CASE EVENT DATE: 20210105
